FAERS Safety Report 10389891 (Version 1)
Quarter: 2014Q3

REPORT INFORMATION
  Report Type: Spontaneous
  Country: US (occurrence: US)
  Receive Date: 20140818
  Receipt Date: 20140818
  Transmission Date: 20150326
  Serious: No
  Sender: FDA-Public Use
  Company Number: US-BAYER-2014-122735

PATIENT
  Age: 37 Year
  Sex: Male
  Weight: 145.13 kg

DRUGS (1)
  1. ALEVE [Suspect]
     Active Substance: NAPROXEN SODIUM
     Indication: JOINT SWELLING
     Dosage: 1 DF, BID
     Route: 048

REACTIONS (2)
  - Therapeutic response changed [None]
  - Incorrect drug administration duration [None]

NARRATIVE: CASE EVENT DATE: 201404
